FAERS Safety Report 8525028-1 (Version None)
Quarter: 2012Q3

REPORT INFORMATION
  Report Type: 
  Country: None (occurrence: None)
  Receive Date: 20120720
  Receipt Date: 20120713
  Transmission Date: 20120928
  Serious: Yes (Hospitalization, Other)
  Sender: FDA-Public Use
  Company Number: DE-BRISTOL-MYERS SQUIBB COMPANY-16648529

PATIENT
  Age: 32 Year
  Sex: Male

DRUGS (2)
  1. AMISULPRIDE [Suspect]
     Indication: SCHIZOPHRENIA
     Dosage: MID OF APRIL DOSE WAS ADDED IN TWO STEPS:150 MG AND THEN 300 MG.RESTARTED AGAIN
  2. ABILIFY [Suspect]
     Indication: SCHIZOPHRENIA
     Dosage: DOSE INCREASED TO 15MG/D
     Route: 048

REACTIONS (2)
  - CHOLELITHIASIS [None]
  - LIVER FUNCTION TEST ABNORMAL [None]
